FAERS Safety Report 9753962 (Version 1)
Quarter: 2013Q4

REPORT INFORMATION
  Report Type: Spontaneous
  Country: US (occurrence: US)
  Receive Date: 20131213
  Receipt Date: 20131213
  Transmission Date: 20140711
  Serious: No
  Sender: FDA-Public Use
  Company Number: US-GLAXOSMITHKLINE-A1000394A

PATIENT
  Sex: Female

DRUGS (1)
  1. KROGER NICOTINE [Suspect]
     Indication: SMOKING CESSATION THERAPY
     Route: 002

REACTIONS (3)
  - Oral disorder [Recovered/Resolved]
  - Oral mucosal exfoliation [Unknown]
  - Oral mucosal exfoliation [Unknown]
